FAERS Safety Report 13877785 (Version 3)
Quarter: 2017Q4

REPORT INFORMATION
  Report Type: Spontaneous
  Country: US (occurrence: US)
  Receive Date: 20170817
  Receipt Date: 20171102
  Transmission Date: 20180320
  Serious: No
  Sender: FDA-Public Use
  Company Number: US-009507513-1708USA007073

PATIENT
  Age: 27 Year
  Sex: Female
  Weight: 104.76 kg

DRUGS (4)
  1. NEXPLANON [Suspect]
     Active Substance: ETONOGESTREL
     Dosage: 1 ROD/ 3 YEARS
     Route: 059
     Dates: end: 20170601
  2. LEVOTHYROXINE SODIUM. [Concomitant]
     Active Substance: LEVOTHYROXINE SODIUM
  3. PRINIVIL [Concomitant]
     Active Substance: LISINOPRIL
     Dosage: 1 TABLET (10 MG), ONCE A DAY
     Route: 048
  4. NEXPLANON [Suspect]
     Active Substance: ETONOGESTREL
     Dosage: 1 ROD/ 3 YEARS
     Route: 059
     Dates: start: 20170601

REACTIONS (4)
  - Device deployment issue [Not Recovered/Not Resolved]
  - Amenorrhoea [Unknown]
  - Device kink [Not Recovered/Not Resolved]
  - Blood pressure abnormal [Unknown]

NARRATIVE: CASE EVENT DATE: 2017
